FAERS Safety Report 15757934 (Version 1)
Quarter: 2018Q4

REPORT INFORMATION
  Report Type: Spontaneous
  Country: ES (occurrence: ES)
  Receive Date: 20181225
  Receipt Date: 20181225
  Transmission Date: 20190205
  Serious: Yes (Hospitalization, Other)
  Sender: FDA-Public Use
  Company Number: ES-ACCORD-097599

PATIENT
  Age: 84 Year
  Sex: Female
  Weight: 47 kg

DRUGS (3)
  1. FUROSEMIDE. [Suspect]
     Active Substance: FUROSEMIDE
     Indication: HYPERTENSION
     Dosage: 40?MG IN THE MORNING
     Route: 048
     Dates: start: 20160425, end: 20180112
  2. ENALAPRIL [Suspect]
     Active Substance: ENALAPRIL
     Indication: HYPERTENSION
     Dosage: ENALAPRIL?5?MG?(HALF TABLET IN THE MORNING
     Route: 048
     Dates: start: 20160425, end: 20180115
  3. SPIRONOLACTONE. [Suspect]
     Active Substance: SPIRONOLACTONE
     Indication: HYPERTENSION
     Dosage: ALDACTONE?100?MG?(0-1/2-0)
     Route: 048
     Dates: start: 20160425, end: 20180112

REACTIONS (2)
  - Hyperkalaemia [Recovered/Resolved]
  - Hyponatraemia [Recovered/Resolved]

NARRATIVE: CASE EVENT DATE: 20180112
